FAERS Safety Report 19174547 (Version 2)
Quarter: 2021Q3

REPORT INFORMATION
  Report Type: Spontaneous
  Country: BR (occurrence: BR)
  Receive Date: 20210423
  Receipt Date: 20210722
  Transmission Date: 20211014
  Serious: Yes (Other)
  Sender: FDA-Public Use
  Company Number: NVSC2021BR066403

PATIENT
  Age: 75 Year
  Sex: Female
  Weight: 85 kg

DRUGS (2)
  1. DIOVAN [Suspect]
     Active Substance: VALSARTAN
     Indication: HYPERTENSION
     Dosage: 2 DF, BID
     Route: 065
     Dates: start: 2020
  2. DIOVAN [Suspect]
     Active Substance: VALSARTAN
     Dosage: 1 DF
     Route: 048

REACTIONS (3)
  - Product lot number issue [Unknown]
  - Blood pressure fluctuation [Recovered/Resolved]
  - Drug ineffective [Unknown]

NARRATIVE: CASE EVENT DATE: 20210316
